FAERS Safety Report 4564580-8 (Version None)
Quarter: 2005Q1

REPORT INFORMATION
  Report Type: 
  Country: None (occurrence: None)
  Receive Date: 20050126
  Receipt Date: 20050106
  Transmission Date: 20050727
  Serious: Yes (Hospitalization)
  Sender: FDA-Public Use
  Company Number: F01200500021

PATIENT
  Age: 67 Year
  Sex: Female

DRUGS (5)
  1. (OXALIPLATIN) - FORM : UNKNOWN - UNIT DOSE : UNKNOWN [Suspect]
     Indication: ANAEMIA OF MALIGNANT DISEASE
     Dates: start: 20041203
  2. (OXALIPLATIN) - FORM : UNKNOWN - UNIT DOSE : UNKNOWN [Suspect]
     Indication: NEOPLASM MALIGNANT
     Dates: start: 20041203
  3. TAXOL [Suspect]
     Dates: start: 20041203
  4. CISPLATIN [Suspect]
  5. (EPOETIN BETA) - FORM : UNKNOWN - UNIT DOSE : UNKNOWN [Suspect]
     Dosage: 30000 IU 1/WEEK SUBCUTANEOUS
     Route: 058
     Dates: start: 20041115

REACTIONS (6)
  - ASTHENIA [None]
  - BLOOD POTASSIUM DECREASED [None]
  - BLOOD SODIUM DECREASED [None]
  - DEHYDRATION [None]
  - DIARRHOEA [None]
  - RENAL FAILURE [None]
